FAERS Safety Report 6416781-1 (Version None)
Quarter: 2009Q4

REPORT INFORMATION
  Report Type: 
  Country: None (occurrence: None)
  Receive Date: 20091027
  Receipt Date: 20091016
  Transmission Date: 20100525
  Serious: Yes (Other)
  Sender: FDA-Public Use
  Company Number: US-GENENTECH-292727

PATIENT

DRUGS (1)
  1. AVASTIN [Suspect]
     Indication: EYE DISORDER
     Route: 031

REACTIONS (1)
  - EYE INFLAMMATION [None]
